FAERS Safety Report 19412632 (Version 1)
Quarter: 2021Q2

REPORT INFORMATION
  Report Type: Spontaneous
  Country: US (occurrence: US)
  Receive Date: 20210614
  Receipt Date: 20210614
  Transmission Date: 20210717
  Serious: Yes (Hospitalization, Other)
  Sender: FDA-Public Use
  Company Number: US-SA-2021SA189203

PATIENT

DRUGS (3)
  1. COUMADIN [Suspect]
     Active Substance: WARFARIN SODIUM
     Dosage: UNK
     Route: 065
     Dates: start: 20200923
  2. COUMADIN [Suspect]
     Active Substance: WARFARIN SODIUM
     Indication: ATRIAL FIBRILLATION
     Dosage: 5 MG, QD
     Route: 048
     Dates: start: 20170218
  3. PLAVIX [Suspect]
     Active Substance: CLOPIDOGREL BISULFATE
     Indication: ATRIAL FIBRILLATION
     Dosage: UNK
     Route: 065

REACTIONS (14)
  - Gait disturbance [Recovering/Resolving]
  - Hypotension [Recovering/Resolving]
  - Ecchymosis [Unknown]
  - Contusion [Unknown]
  - Encephalopathy [Recovering/Resolving]
  - Injury [Unknown]
  - Renal disorder [Unknown]
  - Joint swelling [Unknown]
  - Vomiting [Unknown]
  - Fall [Unknown]
  - Syncope [Recovered/Resolved]
  - Asthenia [Unknown]
  - Haemarthrosis [Recovering/Resolving]
  - Dizziness [Unknown]

NARRATIVE: CASE EVENT DATE: 20200923
